FAERS Safety Report 19556931 (Version 1)
Quarter: 2021Q3

REPORT INFORMATION
  Report Type: Other
  Country: CA (occurrence: CA)
  Receive Date: 20210716
  Receipt Date: 20210716
  Transmission Date: 20211014
  Serious: Yes (Hospitalization)
  Sender: FDA-Public Use
  Company Number: CA-APOTEX-2021AP017279

PATIENT
  Age: 48 Year
  Sex: Female

DRUGS (2)
  1. AMLODIPINE [Suspect]
     Active Substance: AMLODIPINE BESYLATE
     Indication: INTENTIONAL OVERDOSE
     Dosage: 252 MILLIGRAM
     Route: 065
  2. PERINDOPRIL [Suspect]
     Active Substance: PERINDOPRIL
     Indication: INTENTIONAL OVERDOSE
     Dosage: 180 MILLIGRAM
     Route: 065

REACTIONS (2)
  - Intentional overdose [Unknown]
  - Toxicity to various agents [Unknown]
